FAERS Safety Report 22083505 (Version 1)
Quarter: 2023Q1

REPORT INFORMATION
  Report Type: Report from Study
  Country: US (occurrence: US)
  Receive Date: 20230310
  Receipt Date: 20230310
  Transmission Date: 20230418
  Serious: Yes (Hospitalization, Other)
  Sender: FDA-Public Use
  Company Number: US-AUROBINDO-AUR-APL-2023-010721

PATIENT
  Age: 58 Year
  Sex: Male
  Weight: 83.9 kg

DRUGS (6)
  1. BELINOSTAT [Suspect]
     Active Substance: BELINOSTAT
     Indication: Prostate cancer metastatic
     Dosage: UNK (1000) (D1-5, 21 DAY CYCLE)
     Route: 042
     Dates: start: 20221219
  2. CARBOPLATIN [Suspect]
     Active Substance: CARBOPLATIN
     Indication: Chemotherapy
     Dosage: 1 DOSAGE FORM
     Route: 065
  3. CABAZITAXEL [Suspect]
     Active Substance: CABAZITAXEL
     Indication: Chemotherapy
     Dosage: 1 DOSAGE FORM
     Route: 065
  4. TALAZOPARIB [Suspect]
     Active Substance: TALAZOPARIB
     Indication: Prostate cancer metastatic
     Dosage: 1 DOSAGE FORM, DAILY
     Route: 048
     Dates: start: 20221229
  5. ELIQUIS [Concomitant]
     Active Substance: APIXABAN
     Indication: Pulmonary embolism
     Dosage: 5 MILLIGRAM, TWO TIMES A DAY
     Route: 065
  6. FENTANYL [Concomitant]
     Active Substance: FENTANYL
     Indication: Product used for unknown indication
     Dosage: UNK
     Route: 042

REACTIONS (3)
  - Non-cardiac chest pain [Recovered/Resolved]
  - Scrotal infection [Recovering/Resolving]
  - Penile infection [Recovering/Resolving]

NARRATIVE: CASE EVENT DATE: 20230214
